FAERS Safety Report 10200422 (Version 1)
Quarter: 2014Q2

REPORT INFORMATION
  Report Type: Spontaneous
  Country: IT (occurrence: IT)
  Receive Date: 20140528
  Receipt Date: 20140528
  Transmission Date: 20141212
  Serious: Yes (Hospitalization)
  Sender: FDA-Public Use
  Company Number: PHHY2014IT062212

PATIENT
  Age: 67 Year
  Sex: Female

DRUGS (7)
  1. PROPOFOL [Suspect]
     Indication: GENERAL ANAESTHESIA
     Dosage: 140 MG, UNK
  2. REMIFENTANIL [Suspect]
     Indication: GENERAL ANAESTHESIA
     Dosage: 3 NG,  1 TO 3 NG/ML
     Route: 041
  3. REMIFENTANIL [Suspect]
     Dosage: 1 NG/ML, UNK
  4. ROCURONIUM BROMIDE [Suspect]
     Indication: GENERAL ANAESTHESIA
     Dosage: 50 MG, UNK
  5. SEVOFLURANE [Suspect]
  6. BUPIVACAINE [Suspect]
     Dosage: 0.15 % FOLLOWED BY CONTINUOUS INFUSION AT 4 TO 6 ML/H
     Route: 041
  7. LORAZEPAM [Concomitant]
     Dosage: 2 MG, UNK
     Route: 060

REACTIONS (11)
  - Arteriospasm coronary [Recovered/Resolved]
  - Haemodynamic instability [Recovered/Resolved]
  - Pulseless electrical activity [Recovered/Resolved]
  - Atrioventricular block complete [Recovered/Resolved]
  - Rhythm idioventricular [Recovered/Resolved]
  - Bradycardia [Recovered/Resolved]
  - Hypotension [Recovered/Resolved]
  - Electrocardiogram ST segment elevation [Recovered/Resolved]
  - Electrocardiogram QRS complex abnormal [Recovered/Resolved]
  - Ejection fraction abnormal [Recovered/Resolved]
  - Mitral valve incompetence [Recovered/Resolved]
